FAERS Safety Report 9237983 (Version 4)
Quarter: 2013Q3

REPORT INFORMATION
  Report Type: Report from Study
  Country: US (occurrence: US)
  Receive Date: 20130418
  Receipt Date: 20130805
  Transmission Date: 20140515
  Serious: No
  Sender: FDA-Public Use
  Company Number: US-JNJFOC-20130407308

PATIENT
  Age: 54 Year
  Sex: Female
  Weight: 99.79 kg

DRUGS (18)
  1. SIMPONI [Suspect]
     Indication: RHEUMATOID ARTHRITIS
     Route: 058
     Dates: start: 201109
  2. SIMPONI [Suspect]
     Indication: RHEUMATOID ARTHRITIS
     Route: 058
     Dates: start: 20130219
  3. SIMPONI [Suspect]
     Indication: RHEUMATOID ARTHRITIS
     Route: 058
     Dates: end: 20130619
  4. SIMPONI [Suspect]
     Indication: RHEUMATOID ARTHRITIS
     Route: 058
     Dates: start: 20130410
  5. NORTRIPTYLINE [Concomitant]
     Indication: FIBROMYALGIA
     Dates: start: 2003
  6. PLAQUENIL [Concomitant]
     Indication: ARTHRITIS
  7. MELOXICAM [Concomitant]
     Indication: ARTHRITIS
     Dates: start: 2012
  8. ESTRADIOL [Concomitant]
     Indication: MENOPAUSE
     Dates: start: 2012
  9. MILNACIPRAN [Concomitant]
     Indication: FIBROMYALGIA
     Dates: start: 2011
  10. BELLADONNA [Concomitant]
     Indication: DIVERTICULUM
     Dosage: 1 EVERY 6 HOURS AS NEEDED
  11. SAVELLA [Concomitant]
     Indication: DIVERTICULUM
  12. HYDROCODONE [Concomitant]
     Dosage: 1-2 TIMES DAILY
  13. MEPERIDINE [Concomitant]
     Dosage: 1 EVERY 4 HOURS AS NECESSARY
  14. OXYCODONE [Concomitant]
     Dosage: 1-2 AS NECESSARY
  15. ADVAIR [Concomitant]
     Dosage: 2 PUFFS AS NEEDED
  16. CYCLOBENZAPRINE [Concomitant]
     Indication: MUSCLE SPASMS
  17. NASOCORT [Concomitant]
     Indication: MULTIPLE ALLERGIES
     Dosage: 1 SQUIRT EVERY 12 HOURS AS NEEDED
  18. VOLTAREN [Concomitant]

REACTIONS (2)
  - Tooth fracture [Recovered/Resolved]
  - Tooth disorder [Recovered/Resolved]
